FAERS Safety Report 8567910-5 (Version None)
Quarter: 2012Q3

REPORT INFORMATION
  Report Type: 
  Country: None (occurrence: None)
  Receive Date: 20120803
  Receipt Date: 20120730
  Transmission Date: 20120928
  Serious: Yes (Other)
  Sender: FDA-Public Use
  Company Number: JP-B.I. PHARMACEUTICALS,INC./RIDGEFIELD-2012-BP-12746NB

PATIENT
  Sex: Female
  Weight: 55 kg

DRUGS (1)
  1. MICARDIS [Suspect]
     Indication: HYPERTENSION
     Dosage: 40 MG
     Route: 048
     Dates: start: 20101101, end: 20120423

REACTIONS (3)
  - MUSCULOSKELETAL PAIN [None]
  - RAYNAUD'S PHENOMENON [None]
  - MIXED CONNECTIVE TISSUE DISEASE [None]
